FAERS Safety Report 5255608-0 (Version None)
Quarter: 2007Q1

REPORT INFORMATION
  Report Type: 
  Country: None (occurrence: None)
  Receive Date: 20070305
  Receipt Date: 20070228
  Transmission Date: 20070707
  Serious: Yes (Life-Threatening, Hospitalization)
  Sender: FDA-Public Use
  Company Number: US-BOEHRINGER INGELHEIM PHARMACEUTICALS, INC.-2007-BP-02308BP

PATIENT
  Sex: Female

DRUGS (19)
  1. MIRAPEX [Suspect]
     Indication: RESTLESS LEGS SYNDROME
     Route: 048
     Dates: start: 20070130, end: 20070203
  2. TOPROL-XL [Concomitant]
  3. IMDUR [Concomitant]
  4. FOLIC ACID [Concomitant]
     Route: 048
  5. FUROSEMIDE [Concomitant]
     Route: 048
  6. NORVASC [Concomitant]
     Route: 048
  7. CARAFATE [Concomitant]
     Route: 048
  8. ZOCOR [Concomitant]
     Route: 048
  9. TRIAMCINOLONE ACETONIDE [Concomitant]
     Route: 061
  10. COUMADIN [Concomitant]
     Route: 048
  11. COLACE [Concomitant]
     Route: 048
  12. PRILOSEC OTC [Concomitant]
     Route: 048
  13. NATURAL TEARS [Concomitant]
     Route: 047
  14. VICODIN [Concomitant]
     Route: 048
  15. TUMS E-X [Concomitant]
     Route: 048
  16. ALLOPURINOL [Concomitant]
     Route: 048
  17. XANAX [Concomitant]
     Route: 048
  18. NITROGLYCERIN [Concomitant]
     Route: 060
  19. ALDACTONE [Concomitant]
     Route: 048

REACTIONS (3)
  - CARDIAC FAILURE CONGESTIVE [None]
  - HYPOXIA [None]
  - PULMONARY OEDEMA [None]
